FAERS Safety Report 8860278 (Version 1)
Quarter: 2012Q4

REPORT INFORMATION
  Report Type: 
  Country: US (occurrence: US)
  Receive Date: 20121025
  Receipt Date: 20121025
  Transmission Date: 20130627
  Serious: Yes (Other)
  Sender: FDA-Public Use
  Company Number: US-TEVA-366216USA

PATIENT
  Sex: Female

DRUGS (1)
  1. COPAXONE [Suspect]
     Indication: MULTIPLE SCLEROSIS
     Route: 058
     Dates: start: 20120324

REACTIONS (5)
  - White blood cell count increased [Unknown]
  - Chills [Unknown]
  - Pyrexia [Unknown]
  - Gait disturbance [Unknown]
  - Pain in extremity [Unknown]
